FAERS Safety Report 8059304-6 (Version None)
Quarter: 2012Q1

REPORT INFORMATION
  Report Type: 
  Country: None (occurrence: None)
  Receive Date: 20120120
  Receipt Date: 20120118
  Transmission Date: 20120608
  Serious: Yes (Death, Hospitalization)
  Sender: FDA-Public Use
  Company Number: SG-SANOFI-AVENTIS-2012SA003701

PATIENT
  Age: 85 Year
  Sex: Male

DRUGS (1)
  1. ALFUZOSIN HYDROCHLORIDE [Suspect]
     Indication: BENIGN PROSTATIC HYPERPLASIA
     Route: 048

REACTIONS (4)
  - BACTERAEMIA [None]
  - TOXIC EPIDERMAL NECROLYSIS [None]
  - PNEUMONIA [None]
  - RENAL FAILURE CHRONIC [None]
